FAERS Safety Report 5224049-4 (Version None)
Quarter: 2007Q1

REPORT INFORMATION
  Report Type: 
  Country: None (occurrence: None)
  Receive Date: 20070130
  Receipt Date: 20070118
  Transmission Date: 20070707
  Serious: Yes (Life-Threatening, Other)
  Sender: FDA-Public Use
  Company Number: HQWYE009312OCT06

PATIENT
  Sex: Male

DRUGS (3)
  1. PANTOZOL [Suspect]
     Indication: GASTROOESOPHAGEAL REFLUX DISEASE
     Route: 048
     Dates: start: 20000101, end: 20060101
  2. PANTOZOL [Suspect]
     Indication: OESOPHAGITIS
  3. PANTOZOL [Suspect]
     Indication: BARRETT'S OESOPHAGUS

REACTIONS (1)
  - CARCINOID TUMOUR OF THE STOMACH [None]
